FAERS Safety Report 6750236-X (Version None)
Quarter: 2010Q2

REPORT INFORMATION
  Report Type: 
  Country: None (occurrence: None)
  Receive Date: 20100601
  Receipt Date: 20100519
  Transmission Date: 20101027
  Serious: No
  Sender: FDA-Public Use
  Company Number: US-B.I. PHARMACEUTICALS,INC./RIDGEFIELD-2010-BP-00518BP

PATIENT
  Sex: Female
  Weight: 74.39 kg

DRUGS (1)
  1. MIRAPEX [Suspect]
     Indication: RESTLESS LEGS SYNDROME
     Dates: start: 20040630, end: 20090625

REACTIONS (14)
  - AGGRESSION [None]
  - ANXIETY [None]
  - COMPULSIVE SHOPPING [None]
  - DEPRESSION [None]
  - EMOTIONAL DISTRESS [None]
  - FATIGUE [None]
  - HYPERPHAGIA [None]
  - INSOMNIA [None]
  - MIGRAINE [None]
  - NAUSEA [None]
  - PATHOLOGICAL GAMBLING [None]
  - SELF ESTEEM DECREASED [None]
  - SUICIDAL IDEATION [None]
  - WEIGHT INCREASED [None]
